FAERS Safety Report 6537874-4 (Version None)
Quarter: 2010Q1

REPORT INFORMATION
  Report Type: 
  Country: None (occurrence: None)
  Receive Date: 20100114
  Receipt Date: 20100108
  Transmission Date: 20100710
  Serious: Yes (Life-Threatening, Hospitalization)
  Sender: FDA-Public Use
  Company Number: CA-CELGENEUS-028-C5013-10010502

PATIENT
  Sex: Male
  Weight: 62.5 kg

DRUGS (22)
  1. CC-5013 [Suspect]
     Indication: MULTIPLE MYELOMA
     Route: 048
     Dates: start: 20091223, end: 20100107
  2. CC-5013 [Suspect]
     Route: 048
     Dates: start: 20091126
  3. DEXAMETHASONE TAB [Suspect]
     Indication: MULTIPLE MYELOMA
     Route: 065
     Dates: start: 20091223, end: 20100107
  4. DEXAMETHASONE TAB [Suspect]
     Route: 065
     Dates: start: 20091126
  5. ALLOPURINOL [Concomitant]
     Route: 048
  6. CODEINE [Concomitant]
     Indication: PAIN
     Route: 048
  7. COUMADIN [Concomitant]
     Indication: ANTICOAGULANT THERAPY
     Route: 048
     Dates: start: 20091215
  8. COUMADIN [Concomitant]
     Route: 048
     Dates: start: 20091215
  9. ATENOLOL [Concomitant]
     Indication: HYPERTENSION
     Route: 048
  10. NORVASC [Concomitant]
     Indication: HYPERTENSION
     Route: 048
  11. LASIX [Concomitant]
     Indication: DIURETIC THERAPY
     Route: 048
  12. K-DUR [Concomitant]
     Route: 048
  13. TYLENOL (CAPLET) [Concomitant]
     Route: 065
     Dates: start: 20100106, end: 20100106
  14. TYLENOL (CAPLET) [Concomitant]
     Indication: PAIN
     Route: 048
     Dates: start: 20091209
  15. TYLENOL (CAPLET) [Concomitant]
     Dosage: 325-650MG
     Route: 048
     Dates: start: 20100107
  16. HYDROCORTISONE [Concomitant]
     Indication: GLUCOCORTICOIDS ABNORMAL
     Route: 051
     Dates: start: 20100106
  17. GRAVOL TAB [Concomitant]
     Indication: NAUSEA
     Route: 051
     Dates: start: 20100106
  18. FLAGYL [Concomitant]
     Indication: INFECTION
     Route: 051
     Dates: start: 20100106
  19. CELEXA [Concomitant]
     Indication: ANTIDEPRESSANT THERAPY
     Route: 048
     Dates: start: 20091210
  20. PEPCID [Concomitant]
     Indication: GASTROINTESTINAL ULCER
     Route: 051
     Dates: start: 20100107
  21. CALCIUM CARBONATE [Concomitant]
     Indication: MINERAL SUPPLEMENTATION
     Route: 048
     Dates: start: 20100107
  22. CALCIUM GLUCONATE [Concomitant]
     Indication: MINERAL SUPPLEMENTATION
     Dosage: 1 BULB
     Route: 051
     Dates: start: 20100107, end: 20100107

REACTIONS (14)
  - ALANINE AMINOTRANSFERASE INCREASED [None]
  - ASPARTATE AMINOTRANSFERASE INCREASED [None]
  - BACTERIAL INFECTION [None]
  - BLOOD ALBUMIN DECREASED [None]
  - BLOOD BILIRUBIN INCREASED [None]
  - BLOOD CREATININE INCREASED [None]
  - BLOOD CULTURE POSITIVE [None]
  - BLOOD GLUCOSE INCREASED [None]
  - BLOOD UREA INCREASED [None]
  - DIARRHOEA [None]
  - NEUTROPENIA [None]
  - RASH MACULAR [None]
  - SEPTIC SHOCK [None]
  - URINARY BLADDER HAEMORRHAGE [None]
